FAERS Safety Report 8859229 (Version 1)
Quarter: 2012Q4

REPORT INFORMATION
  Report Type: 
  Country: JP (occurrence: JP)
  Receive Date: 20121024
  Receipt Date: 20121024
  Transmission Date: 20130627
  Serious: Yes (Hospitalization)
  Sender: FDA-Public Use
  Company Number: JP-B.I. PHARMACEUTICALS,INC./RIDGEFIELD-2012-BP-25969NB

PATIENT
  Sex: Male

DRUGS (7)
  1. PRAZAXA [Suspect]
     Indication: ATRIAL FIBRILLATION
     Dosage: 220 mg
     Route: 048
  2. HARNAL [Concomitant]
     Route: 048
  3. DIOVAN [Concomitant]
     Route: 048
  4. GASMOTIN [Concomitant]
     Route: 048
  5. SYMBICORT [Concomitant]
     Route: 055
  6. SPIRIVA [Concomitant]
     Route: 055
  7. ONBREZ [Concomitant]
     Route: 055

REACTIONS (2)
  - Hypoglycaemia [Unknown]
  - Aversion [Not Recovered/Not Resolved]
